FAERS Safety Report 10257794 (Version 2)
Quarter: 2014Q2

REPORT INFORMATION
  Report Type: Spontaneous
  Country: IT (occurrence: None)
  Receive Date: 20140620
  Receipt Date: 20140630
  Transmission Date: 20141212
  Serious: Yes (Hospitalization)
  Sender: FDA-Public Use
  Company Number: FK201402392

PATIENT
  Age: 80 Year
  Sex: Female

DRUGS (24)
  1. LEVOFLOXACIN [Suspect]
     Indication: PNEUMONIA BACTERIAL
     Dosage: 1 DOSAGE FORMS
     Dates: start: 20140409, end: 20140429
  2. CLEXANE [Suspect]
     Indication: THROMBOSIS PROPHYLAXIS
     Dosage: 4000 IU, INTRAVENOUS (NOT OTHERWISE SPECIFIED)?
     Route: 042
     Dates: start: 20140417, end: 20140418
  3. CALCIPARINA [Suspect]
     Indication: DEEP VEIN THROMBOSIS
     Route: 058
  4. TAZOCIN [Suspect]
     Indication: THROMBOSIS PROPHYLAXIS
     Route: 030
     Dates: start: 20140408, end: 20140428
  5. INVANZ [Suspect]
     Indication: PNEUMONIA BACTERIAL
     Dosage: 1 GM, INTRAVENOUS (NOT OTHERWISE SPECIFIED)?
     Route: 042
  6. VANCOMICINA HIKMA [Suspect]
     Indication: PNEUMONIA BACTERIAL
     Dosage: 2 GM, INTRAVENOUS (NOT OTHERWISE SPECIFIED)?
     Route: 042
  7. CETIRIZINA [Suspect]
     Indication: PRODUCT USED FOR UNKNOWN INDICATION
     Route: 048
  8. CONTRAMAL [Suspect]
     Indication: PRODUCT USED FOR UNKNOWN INDICATION
     Dosage: 20 DOSAGE FORMS, ORAL
     Route: 048
     Dates: start: 20140409, end: 20140427
  9. TIKLID [Suspect]
     Indication: THROMBOCYTOPENIA
     Dosage: 2 DOSAGE FORMS, ORAL
     Route: 048
     Dates: start: 20140409, end: 20140427
  10. ACICLIN [Suspect]
     Indication: GENITAL HERPES
     Route: 048
  11. ACETYLCYSTEIN [Suspect]
     Dosage: 600 MG, 3 IN 1 D
     Dates: start: 20140514, end: 20140515
  12. MOVICOL [Suspect]
     Dates: start: 20140513, end: 20140519
  13. KANRENOL [Suspect]
     Dosage: 1 IN 1 D
     Dates: start: 20140512, end: 20140525
  14. CLENIL (BECLOMETASONE DIPROPIONATE) [Suspect]
     Dates: start: 20140412, end: 20140516
  15. ATEM [Suspect]
     Dates: start: 20140412, end: 20140516
  16. BRONCOVALEAS [Suspect]
  17. IOMERON 350 [Suspect]
     Dosage: 30 ML, INTRAVENOUS (NOT OTHERWISE SPECIFIED)?
     Route: 042
     Dates: start: 20140514
  18. OMEPRAZOLE (OMEPRAZOLE) [Concomitant]
  19. XAGRID (ANAGRELIDE HYDROCHLORIDE) [Concomitant]
  20. SEREVENT (SALMETEROL XINAFOATE) [Concomitant]
  21. AIRCORT (BECLOMETHASONE DIPROPIONATE) [Concomitant]
  22. FOLINA (FOLIC ACID) [Concomitant]
  23. TAVOR (LORAZEPAM) [Concomitant]
  24. LASIX (FUROSEMIDE) [Concomitant]

REACTIONS (8)
  - Drug reaction with eosinophilia and systemic symptoms [None]
  - Pyrexia [None]
  - Dermatitis bullous [None]
  - Generalised oedema [None]
  - Skin exfoliation [None]
  - Secretion discharge [None]
  - Drug hypersensitivity [None]
  - Contrast media reaction [None]
